FAERS Safety Report 8276192-3 (Version None)
Quarter: 2012Q2

REPORT INFORMATION
  Report Type: 
  Country: None (occurrence: None)
  Receive Date: 20120412
  Receipt Date: 20120404
  Transmission Date: 20120825
  Serious: Yes (Hospitalization, Other)
  Sender: FDA-Public Use
  Company Number: US-ASTELLAS-2012US003398

PATIENT
  Sex: Male
  Weight: 112 kg

DRUGS (1)
  1. PROGRAF [Suspect]
     Indication: RENAL TRANSPLANT
     Dosage: 1.5 MG, BID
     Route: 048
     Dates: start: 20050117

REACTIONS (3)
  - PERIPHERAL ARTERIAL OCCLUSIVE DISEASE [None]
  - BLISTER [None]
  - MYOCARDIAL INFARCTION [None]
